FAERS Safety Report 16424392 (Version 2)
Quarter: 2019Q3

REPORT INFORMATION
  Report Type: Report from Study
  Country: US (occurrence: US)
  Receive Date: 20190613
  Receipt Date: 20190716
  Transmission Date: 20191004
  Serious: Yes (Hospitalization)
  Sender: FDA-Public Use
  Company Number: US-TESAROUBC-2019-TSO02140-US

PATIENT
  Age: 74 Year
  Sex: Female

DRUGS (29)
  1. VITAMIN C [Concomitant]
     Active Substance: ASCORBIC ACID
     Indication: SUPPLEMENTATION THERAPY
     Dosage: 2000 MG, QD
     Route: 048
     Dates: start: 2018
  2. COLACE [Concomitant]
     Active Substance: DOCUSATE SODIUM
     Indication: CONSTIPATION
     Dosage: 100 MG, PRN DAILY
     Route: 048
     Dates: start: 2018
  3. LORATADINE. [Concomitant]
     Active Substance: LORATADINE
     Indication: SINUSITIS
     Dosage: 10 MG, QD
     Route: 048
     Dates: start: 2014
  4. ASA [Concomitant]
     Active Substance: ASPIRIN
     Indication: PROPHYLAXIS
     Dosage: 81 MG, QD
     Route: 048
     Dates: start: 2010
  5. CYANOCOBALAMIN. [Concomitant]
     Active Substance: CYANOCOBALAMIN
     Indication: SUPPLEMENTATION THERAPY
     Dosage: 1000 ?G, QD
     Route: 048
     Dates: start: 2012
  6. ONDANSETRON [Concomitant]
     Active Substance: ONDANSETRON
     Indication: PROPHYLAXIS OF NAUSEA AND VOMITING
     Dosage: 8 MG, Q12H PRN
     Route: 048
     Dates: start: 2004, end: 20190605
  7. CREON [Concomitant]
     Active Substance: PANCRELIPASE AMYLASE\PANCRELIPASE LIPASE\PANCRELIPASE PROTEASE
     Indication: CARCINOID TUMOUR
     Dosage: 1 DF, TID
     Route: 048
     Dates: start: 2005
  8. PROCHLORPERAZINE. [Concomitant]
     Active Substance: PROCHLORPERAZINE
     Indication: NAUSEA
     Dosage: 10 MG, Q6H PRN
     Route: 048
     Dates: start: 200905
  9. TEMOZOLOMIDE. [Suspect]
     Active Substance: TEMOZOLOMIDE
     Indication: SMALL CELL LUNG CANCER
     Dosage: UNK
     Dates: start: 20190520, end: 20190524
  10. TEMOZOLOMIDE. [Suspect]
     Active Substance: TEMOZOLOMIDE
     Dosage: UNK
     Dates: start: 20190524
  11. HYPERTONIC SALINE SOLUTION [Concomitant]
     Active Substance: SODIUM CHLORIDE
     Indication: SINUSITIS
     Dosage: 1 DF, PRN
     Route: 045
     Dates: start: 2014
  12. MAGNESIUM [Concomitant]
     Active Substance: MAGNESIUM
     Indication: CONSTIPATION
     Dosage: 350 MG, QD
     Route: 048
     Dates: start: 2018
  13. MELATONIN [Concomitant]
     Active Substance: MELATONIN
     Indication: INSOMNIA
     Dosage: 6 MG, QD
     Route: 048
     Dates: start: 2018
  14. BIOTIN [Concomitant]
     Active Substance: BIOTIN
     Indication: SUPPLEMENTATION THERAPY
     Dosage: 10 MG, QD
     Route: 048
     Dates: start: 2012
  15. DEXAMETHASONE                      /00016002/ [Concomitant]
     Active Substance: DEXAMETHASONE SODIUM PHOSPHATE
     Indication: MUCOSAL INFLAMMATION
     Dosage: 5 ML, QID (0.5MG/5ML)
     Route: 048
     Dates: start: 20190528
  16. NIRAPARIB [Suspect]
     Active Substance: NIRAPARIB
     Dosage: UNK
     Dates: start: 20190530
  17. CALCIUM CARBONATE AND VITAMIN D [Concomitant]
     Active Substance: CALCIUM CARBONATE\VITAMIN D
     Indication: OSTEOPOROSIS
     Dosage: 3000 DF, QD
     Route: 048
     Dates: start: 2012
  18. CLOTRIMAZOLE. [Concomitant]
     Active Substance: CLOTRIMAZOLE
     Indication: MUCOSAL INFLAMMATION
     Dosage: 10 MG, QID
     Route: 048
     Dates: start: 20190528, end: 20190601
  19. ACETAMINOPHEN. [Concomitant]
     Active Substance: ACETAMINOPHEN
     Indication: FALL
     Dosage: 500 MG, PRN
     Route: 048
     Dates: start: 20190531
  20. LIDOCAINE HYDROCHLORIDE W/PRILOCAINE [Concomitant]
     Indication: HYPOAESTHESIA
     Dosage: 10 G, PRN
     Route: 061
     Dates: start: 2009
  21. ESTRADIOL. [Concomitant]
     Active Substance: ESTRADIOL
     Indication: VAGINAL HAEMORRHAGE
     Dosage: 1 G, 2X WEEKLY
     Route: 067
     Dates: start: 1999
  22. L-CYSTEINE                         /00164801/ [Concomitant]
     Indication: SUPPLEMENTATION THERAPY
     Dosage: 1000 MG, QD
     Route: 048
     Dates: start: 2014
  23. VITAMINS                           /00067501/ [Concomitant]
     Active Substance: VITAMINS
  24. COMPAZINE                          /00013302/ [Concomitant]
     Active Substance: PROCHLORPERAZINE EDISYLATE
     Indication: NAUSEA
     Dosage: 10 MG, PRN
     Route: 048
     Dates: start: 20190506
  25. NIRAPARIB [Suspect]
     Active Substance: NIRAPARIB
     Indication: SMALL CELL LUNG CANCER
     Dosage: UNK
     Dates: start: 20190520, end: 20190530
  26. IPRATROPIUM [Concomitant]
     Active Substance: IPRATROPIUM
     Indication: SINUSITIS
     Dosage: 2 DF, BID
     Route: 045
     Dates: start: 2014
  27. LANREOTIDE [Concomitant]
     Active Substance: LANREOTIDE
     Indication: CARCINOID SYNDROME
     Dosage: 120 MG, MONTHLY
     Route: 030
     Dates: start: 2017
  28. CHOLECALCIFEROL [Concomitant]
     Active Substance: CHOLECALCIFEROL
     Indication: OSTEOPOROSIS
     Dosage: 5000 DF, QD
     Route: 048
     Dates: start: 2012
  29. CLOBETASOL [Concomitant]
     Active Substance: CLOBETASOL
     Indication: THERAPEUTIC SKIN CARE TOPICAL
     Dosage: 1 APP, PRN
     Route: 061
     Dates: start: 2014

REACTIONS (2)
  - Febrile neutropenia [Recovered/Resolved]
  - Neutropenia [Unknown]

NARRATIVE: CASE EVENT DATE: 20190601
